FAERS Safety Report 20841404 (Version 2)
Quarter: 2022Q2

REPORT INFORMATION
  Report Type: Spontaneous
  Country: US (occurrence: US)
  Receive Date: 20220517
  Receipt Date: 20220615
  Transmission Date: 20220721
  Serious: Yes (Other)
  Sender: FDA-Public Use
  Company Number: US-BRISTOL-MYERS SQUIBB COMPANY-2022-035396

PATIENT
  Age: 73 Year
  Sex: Female

DRUGS (1)
  1. POMALYST [Suspect]
     Active Substance: POMALIDOMIDE
     Indication: Plasma cell myeloma in remission
     Dosage: 3 MG CAPSULE BY MOUTH DAYS 1-2`1 OF A 28 DAY CYCLE (TAKE WHOLE WITH WATER, WITH OR WITHOUT FOOD AT T
     Route: 048

REACTIONS (1)
  - Malignant neoplasm progression [Unknown]
